APPROVED DRUG PRODUCT: CARBIDOPA
Active Ingredient: CARBIDOPA
Strength: 25MG
Dosage Form/Route: TABLET;ORAL
Application: A217961 | Product #001 | TE Code: AB
Applicant: REGCON HOLDINGS LLC
Approved: Dec 11, 2023 | RLD: No | RS: No | Type: RX